FAERS Safety Report 9674918 (Version 1)
Quarter: 2013Q4

REPORT INFORMATION
  Report Type: Spontaneous
  Country: US (occurrence: US)
  Receive Date: 20131107
  Receipt Date: 20131107
  Transmission Date: 20140711
  Serious: Yes (Other)
  Sender: FDA-Public Use
  Company Number: US-ROXANE LABORATORIES, INC.-2013-RO-01788RO

PATIENT
  Age: 63 Year
  Sex: Male

DRUGS (1)
  1. CALCIUM ACETATE [Suspect]
     Indication: HYPERPHOSPHATAEMIA
     Route: 048

REACTIONS (1)
  - Intestinal calcification [Unknown]
